FAERS Safety Report 23982815 (Version 2)
Quarter: 2024Q3

REPORT INFORMATION
  Report Type: Spontaneous
  Country: US (occurrence: US)
  Receive Date: 20240617
  Receipt Date: 20240807
  Transmission Date: 20241017
  Serious: No
  Sender: MYLAN
  Company Number: US-MYLANLABS-2024M1053739

PATIENT
  Age: 51 Year
  Sex: Female
  Weight: 52.16 kg

DRUGS (2)
  1. ESTRADIOL TRANSDERMAL SYSTEM [Suspect]
     Active Substance: ESTRADIOL
     Indication: Menopause
     Dosage: 0.0375 MILLIGRAM, QD (TWICE WEEKLY)
     Route: 062
     Dates: start: 20240306, end: 20240401
  2. PROGESTERONE [Concomitant]
     Active Substance: PROGESTERONE
     Dosage: UNK
     Route: 065

REACTIONS (11)
  - Anger [Recovering/Resolving]
  - Sleep disorder [Recovering/Resolving]
  - Blood oestrogen increased [Recovering/Resolving]
  - Malaise [Recovering/Resolving]
  - Pain [Recovering/Resolving]
  - Intermenstrual bleeding [Recovering/Resolving]
  - Breast tenderness [Recovering/Resolving]
  - Headache [Recovering/Resolving]
  - Mood altered [Recovering/Resolving]
  - Therapeutic response changed [Unknown]
  - Product substitution issue [Unknown]

NARRATIVE: CASE EVENT DATE: 20240310
